FAERS Safety Report 8947907 (Version 1)
Quarter: 2012Q4

REPORT INFORMATION
  Report Type: Spontaneous
  Country: US (occurrence: None)
  Receive Date: 20121127
  Receipt Date: 20121127
  Transmission Date: 20130627
  Serious: Yes (Hospitalization, Disabling, Other)
  Sender: FDA-Public Use
  Company Number: ACO_32972_2012

PATIENT
  Age: 70 Year
  Sex: Female
  Weight: 95.71 kg

DRUGS (12)
  1. AMPYRA (DALFAMPRIDINE) TABLET, 10MG [Suspect]
     Indication: GAIT DISTURBANCE
     Route: 048
     Dates: start: 2011
  2. AMPYRA (DALFAMPRIDINE) TABLET, 10MG [Suspect]
     Indication: GAIT DISTURBANCE
     Route: 048
  3. GABAPENTIN (GABAPENTIN) [Concomitant]
  4. AMITRIPTYLINE (AMITRIPTYLINE HYDROCHLORIDE) [Concomitant]
  5. COPAXONE (GLATIRAMER ACETATE) [Concomitant]
  6. LISINOPRIL AND HYDROCHLOROTHIAZIDE (HYDROCHLOROTHIAZIDE, LISINOPRIL) [Concomitant]
  7. NIFEDIPINE (NIFEDIPINE) [Concomitant]
  8. POTASSIUM CHLORIDE (POTASSIUM CHLORIDE) [Concomitant]
  9. TRAMADOL (TRAMADOL HYDROCHLORIDE) [Concomitant]
  10. MULTIVITAMIN (VITAMINS NOS) [Concomitant]
  11. VITAMIN D (COLECALCIFEROL) [Concomitant]
  12. PREDNISONE (PREDNISONE) [Concomitant]

REACTIONS (9)
  - Sepsis [None]
  - Blood pressure decreased [None]
  - Dehydration [None]
  - Dysstasia [None]
  - Asthenia [None]
  - Fall [None]
  - Diarrhoea [None]
  - Insomnia [None]
  - Inappropriate schedule of drug administration [None]
